FAERS Safety Report 4591875-4 (Version None)
Quarter: 2005Q1

REPORT INFORMATION
  Report Type: 
  Country: None (occurrence: None)
  Receive Date: 20050222
  Receipt Date: 20050208
  Transmission Date: 20050727
  Serious: Yes (Other)
  Sender: FDA-Public Use
  Company Number: HQWYE199809FEB05

PATIENT
  Sex: Male

DRUGS (2)
  1. EFFEXOR [Suspect]
     Dates: start: 20040101
  2. WELLBUTRIN XL [Suspect]
     Indication: DEPRESSION
     Dosage: SEE IMAGE
     Route: 048

REACTIONS (3)
  - CONVULSION [None]
  - DRUG INTERACTION [None]
  - PHOTOPSIA [None]
